FAERS Safety Report 23761769 (Version 1)
Quarter: 2024Q2

REPORT INFORMATION
  Report Type: Spontaneous
  Country: FR (occurrence: FR)
  Receive Date: 20240419
  Receipt Date: 20240419
  Transmission Date: 20240716
  Serious: Yes (Other)
  Sender: FDA-Public Use
  Company Number: FR-AFSSAPS-NT2024000328

PATIENT
  Age: 52 Year
  Sex: Female
  Weight: 69 kg

DRUGS (8)
  1. CARBOPLATIN [Suspect]
     Active Substance: CARBOPLATIN
     Indication: Triple negative breast cancer
     Dosage: UNK (AUC 1.5 EVERY WEEK)
     Route: 042
     Dates: start: 20230227
  2. CARBOPLATIN [Suspect]
     Active Substance: CARBOPLATIN
     Dosage: UNK, EVERY WEEK
     Route: 042
     Dates: start: 20230501, end: 20230515
  3. EPIRUBICIN [Suspect]
     Active Substance: EPIRUBICIN
     Indication: Triple negative breast cancer
     Dosage: 75 MG/M2  3 WEEK
     Route: 042
     Dates: start: 20230605, end: 20230605
  4. EPIRUBICIN [Suspect]
     Active Substance: EPIRUBICIN
     Dosage: 75 MG/M2  3 WEEK
     Route: 042
     Dates: start: 20230605, end: 20230626
  5. EPIRUBICIN [Suspect]
     Active Substance: EPIRUBICIN
     Dosage: 90 MG/M2 3 WEEK
     Route: 042
     Dates: start: 20230626, end: 20230807
  6. TAXOL [Suspect]
     Active Substance: PACLITAXEL
     Indication: Triple negative breast cancer
     Dosage: 80 MILLIGRAM/SQ. METER, EVERY WEEK
     Route: 042
     Dates: start: 20230227, end: 20230515
  7. KEYTRUDA [Suspect]
     Active Substance: PEMBROLIZUMAB
     Indication: Triple negative breast cancer
     Dosage: 200 MILLIGRAM, Q21D
     Route: 042
     Dates: start: 20230227, end: 20231218
  8. CYCLOPHOSPHAMIDE [Suspect]
     Active Substance: CYCLOPHOSPHAMIDE
     Indication: Triple negative breast cancer
     Dosage: 600 MG/M2 3 WEEK
     Route: 042
     Dates: start: 20230605

REACTIONS (4)
  - Neutropenia [Unknown]
  - Weight decreased [Unknown]
  - Hepatic cytolysis [Recovered/Resolved]
  - Therapy partial responder [Unknown]

NARRATIVE: CASE EVENT DATE: 20230101
